FAERS Safety Report 26051914 (Version 1)
Quarter: 2025Q4

REPORT INFORMATION
  Report Type: Report from Study
  Country: CA (occurrence: CA)
  Receive Date: 20251117
  Receipt Date: 20251117
  Transmission Date: 20260117
  Serious: No
  Sender: BIOGEN
  Company Number: CA-BIOGEN-2025BI01318567

PATIENT
  Age: 31 Year
  Sex: Male

DRUGS (1)
  1. TYSABRI [Suspect]
     Active Substance: NATALIZUMAB
     Indication: Multiple sclerosis
     Dates: start: 20250724

REACTIONS (18)
  - Asthenia [Not Recovered/Not Resolved]
  - Viral infection [Unknown]
  - Feeling hot [Unknown]
  - Multiple sclerosis pseudo relapse [Unknown]
  - Memory impairment [Not Recovered/Not Resolved]
  - Rash [Not Recovered/Not Resolved]
  - Cardiovascular disorder [Unknown]
  - Insomnia [Not Recovered/Not Resolved]
  - Muscular weakness [Recovered/Resolved]
  - Hypoaesthesia [Recovered/Resolved]
  - Seasonal allergy [Not Recovered/Not Resolved]
  - Fatigue [Recovered/Resolved]
  - Ear congestion [Recovered/Resolved]
  - Infusion site warmth [Unknown]
  - Dry throat [Unknown]
  - Rhinorrhoea [Unknown]
  - Oropharyngeal pain [Recovered/Resolved]
  - Aphasia [Not Recovered/Not Resolved]

NARRATIVE: CASE EVENT DATE: 20250101
